FAERS Safety Report 11838938 (Version 1)
Quarter: 2015Q4

REPORT INFORMATION
  Report Type: Spontaneous
  Country: US (occurrence: US)
  Receive Date: 20151216
  Receipt Date: 20151216
  Transmission Date: 20160305
  Serious: No
  Sender: FDA-Public Use
  Company Number: US-BRISTOL-MYERS SQUIBB COMPANY-BMS-2015-086659

PATIENT
  Age: 34 Year
  Sex: Male

DRUGS (6)
  1. NUVIGIL [Concomitant]
     Active Substance: ARMODAFINIL
     Indication: PRODUCT USED FOR UNKNOWN INDICATION
     Route: 065
  2. VITAMIN 15 [Concomitant]
     Indication: PRODUCT USED FOR UNKNOWN INDICATION
     Route: 065
  3. ABILIFY [Suspect]
     Active Substance: ARIPIPRAZOLE
     Indication: DEPRESSION
     Dosage: UNK, QD
     Route: 065
     Dates: start: 201302
  4. ABILIFY [Suspect]
     Active Substance: ARIPIPRAZOLE
     Indication: IRRITABILITY
  5. ABILIFY [Suspect]
     Active Substance: ARIPIPRAZOLE
     Indication: SLEEP DISORDER
  6. ABILIFY [Suspect]
     Active Substance: ARIPIPRAZOLE
     Indication: CHOREA

REACTIONS (4)
  - Somnolence [Recovering/Resolving]
  - Off label use [Unknown]
  - Wrong technique in product usage process [Unknown]
  - Chorea [Unknown]
